FAERS Safety Report 5344368-0 (Version None)
Quarter: 2007Q2

REPORT INFORMATION
  Report Type: 
  Country: None (occurrence: None)
  Receive Date: 20070604
  Receipt Date: 20070530
  Transmission Date: 20071010
  Serious: Yes (Hospitalization)
  Sender: FDA-Public Use
  Company Number: CA-ASTRAZENECA-2007UW10874

PATIENT
  Age: 18620 Day
  Sex: Female
  Weight: 81.8 kg

DRUGS (7)
  1. CRESTOR [Suspect]
     Indication: BLOOD CHOLESTEROL
     Route: 048
     Dates: start: 20061207, end: 20070401
  2. OXYCONTIN [Concomitant]
     Indication: PAIN
     Route: 048
     Dates: start: 20070201
  3. TYLENOL W/ CODEINE [Concomitant]
     Indication: PAIN
     Dosage: 2 EVERY 6 HOURS
     Route: 048
     Dates: start: 19850101
  4. WELLBUTRIN [Concomitant]
     Indication: ANTIDEPRESSANT THERAPY
     Route: 048
     Dates: start: 20070101
  5. ZALEPLON [Concomitant]
     Indication: INSOMNIA
     Route: 048
     Dates: start: 20070201
  6. WARFARIN SODIUM [Concomitant]
     Indication: THROMBOSIS
     Route: 048
     Dates: start: 20040901
  7. SALMETEROL [Concomitant]
     Indication: DYSPNOEA
     Route: 055
     Dates: start: 20020101

REACTIONS (2)
  - MYALGIA [None]
  - POLYARTHRITIS [None]
